FAERS Safety Report 7583018-X (Version None)
Quarter: 2011Q2

REPORT INFORMATION
  Report Type: 
  Country: None (occurrence: None)
  Receive Date: 20110630
  Receipt Date: 20110620
  Transmission Date: 20111010
  Serious: Yes (Life-Threatening)
  Sender: FDA-Public Use
  Company Number: NL-BRISTOL-MYERS SQUIBB COMPANY-15843527

PATIENT
  Age: 64 Year
  Sex: Female

DRUGS (5)
  1. CYCLOPHOSPHAMIDE [Suspect]
     Indication: BREAST CANCER
     Dosage: OUT OF 3 PLANNED CYCLES, 3RD CYCLE DONE WITHOUT CYCLOPHOSPHAMIDE.
  2. EPIRUBICIN [Suspect]
     Indication: BREAST CANCER
  3. FLUOROURACIL [Suspect]
     Indication: BREAST CANCER
  4. CITALOPRAM HYDROBROMIDE [Suspect]
     Indication: DEPRESSION
     Dosage: DRUG INCREASED FROM30-40MG BEFORE 2ND CYCLE AFTER 2ND CYCLE DISCONTINUED AND REINTRODUCED WITH 20MG.
  5. CITALOPRAM HYDROBROMIDE [Suspect]
     Indication: ANXIETY DISORDER
     Dosage: DRUG INCREASED FROM30-40MG BEFORE 2ND CYCLE AFTER 2ND CYCLE DISCONTINUED AND REINTRODUCED WITH 20MG.

REACTIONS (1)
  - HYPONATRAEMIA [None]
